FAERS Safety Report 5809163-4 (Version None)
Quarter: 2008Q3

REPORT INFORMATION
  Report Type: 
  Country: None (occurrence: None)
  Receive Date: 20080714
  Receipt Date: 20080702
  Transmission Date: 20090109
  Serious: Yes (Disabling)
  Sender: FDA-Public Use
  Company Number: JP-PFIZER INC-2008045675

PATIENT
  Sex: Female
  Weight: 37.5 kg

DRUGS (13)
  1. VFEND [Suspect]
     Indication: BRONCHOPULMONARY ASPERGILLOSIS
     Route: 048
     Dates: start: 20080122, end: 20080122
  2. VFEND [Suspect]
     Indication: PULMONARY MYCOSIS
     Route: 048
     Dates: start: 20080123, end: 20080326
  3. ITRIZOLE [Suspect]
     Indication: PULMONARY MYCOSIS
     Dosage: DAILY DOSE:200MG
     Route: 048
     Dates: start: 20080327, end: 20080507
  4. CLARITHROMYCIN [Concomitant]
     Route: 048
  5. MUCOSTA [Concomitant]
     Route: 048
  6. FAMOTIDINE [Concomitant]
     Route: 048
  7. CYANOCOBALAMIN [Concomitant]
     Route: 048
  8. MUCOSOLVAN [Concomitant]
     Route: 048
  9. NABOAL - SLOW RELEASE [Concomitant]
     Route: 048
  10. MICAFUNGIN [Concomitant]
     Route: 042
     Dates: start: 20071228, end: 20080121
  11. RIFADIN [Concomitant]
     Route: 048
     Dates: start: 20071220, end: 20080115
  12. ISCOTIN [Concomitant]
     Route: 048
     Dates: start: 20071220, end: 20080115
  13. STREPTOMYCIN SULFATE [Concomitant]
     Route: 042

REACTIONS (4)
  - BLINDNESS UNILATERAL [None]
  - PHOSPHENES [None]
  - PHOTOPHOBIA [None]
  - VISION BLURRED [None]
